FAERS Safety Report 10568231 (Version 1)
Quarter: 2014Q4

REPORT INFORMATION
  Report Type: Spontaneous
  Country: DK (occurrence: None)
  Receive Date: 20141104
  Receipt Date: 20141104
  Transmission Date: 20150529
  Serious: Yes (Other)
  Sender: FDA-Public Use
  Company Number: ADR-2014-01016

PATIENT
  Age: 38 Year
  Sex: Male

DRUGS (1)
  1. LIORESAL [Suspect]
     Active Substance: BACLOFEN
     Indication: MUSCLE SPASTICITY

REACTIONS (5)
  - Hyperhidrosis [None]
  - Drug effect decreased [None]
  - Seizure [None]
  - Hypersensitivity [None]
  - Muscle spasms [None]

NARRATIVE: CASE EVENT DATE: 20140102
